FAERS Safety Report 23103221 (Version 1)
Quarter: 2023Q4

REPORT INFORMATION
  Report Type: Spontaneous
  Country: FR (occurrence: FR)
  Receive Date: 20231025
  Receipt Date: 20231025
  Transmission Date: 20240109
  Serious: Yes (Other)
  Sender: FDA-Public Use
  Company Number: None

PATIENT
  Age: 68 Year
  Sex: Male
  Weight: 83 kg

DRUGS (1)
  1. MIRTAZAPINE [Suspect]
     Active Substance: MIRTAZAPINE
     Indication: Withdrawal syndrome
     Dosage: UNK
     Route: 048

REACTIONS (3)
  - Drug dependence [Recovered/Resolved]
  - Sexual dysfunction [Recovered/Resolved]
  - Withdrawal syndrome [Recovered/Resolved]
